FAERS Safety Report 10600797 (Version 3)
Quarter: 2015Q1

REPORT INFORMATION
  Report Type: Spontaneous
  Country: CN (occurrence: CN)
  Receive Date: 20141124
  Receipt Date: 20150217
  Transmission Date: 20150720
  Serious: Yes (Hospitalization)
  Sender: FDA-Public Use
  Company Number: CN-ROCHE-1495541

PATIENT
  Age: 60 Year
  Sex: Female

DRUGS (3)
  1. OXALIPLATIN. [Suspect]
     Active Substance: OXALIPLATIN
     Indication: COLON CANCER METASTATIC
     Route: 065
     Dates: start: 20140822
  2. AVASTIN [Suspect]
     Active Substance: BEVACIZUMAB
     Indication: COLON CANCER METASTATIC
     Dosage: DOSE: 7.5 MG/KG
     Route: 041
     Dates: start: 20140821
  3. XELODA [Suspect]
     Active Substance: CAPECITABINE
     Indication: COLON CANCER METASTATIC
     Route: 048
     Dates: start: 20140822

REACTIONS (1)
  - Female genital tract fistula [Recovering/Resolving]

NARRATIVE: CASE EVENT DATE: 201411
